FAERS Safety Report 24397655 (Version 2)
Quarter: 2024Q4

REPORT INFORMATION
  Report Type: Spontaneous
  Country: US (occurrence: US)
  Receive Date: 20241004
  Receipt Date: 20241106
  Transmission Date: 20250114
  Serious: No
  Sender: PFIZER
  Company Number: US-PFIZER INC-PV202400128173

PATIENT
  Age: 69 Year

DRUGS (2)
  1. COMIRNATY (BNT162B2 OMICRON (KP.2)) [Suspect]
     Active Substance: BNT162B2 OMICRON (KP.2)
     Indication: COVID-19 immunisation
     Dosage: DOSE 1, SINGLE
  2. PREMARIN [Suspect]
     Active Substance: ESTROGENS, CONJUGATED
     Dosage: UNK

REACTIONS (2)
  - Blood pressure increased [Unknown]
  - White coat hypertension [Unknown]
